FAERS Safety Report 4293334-5 (Version None)
Quarter: 2004Q1

REPORT INFORMATION
  Report Type: 
  Country: None (occurrence: None)
  Receive Date: 20040126
  Receipt Date: 20031117
  Transmission Date: 20041129
  Serious: No
  Sender: FDA-Public Use
  Company Number: USA031050606

PATIENT
  Age: 74 Year
  Sex: Female

DRUGS (1)
  1. FORTEO [Suspect]
     Indication: OSTEOPOROSIS
     Dosage: 20 UG/DAY
     Dates: start: 20031006

REACTIONS (6)
  - ANOREXIA [None]
  - DIFFICULTY IN WALKING [None]
  - MOVEMENT DISORDER [None]
  - NERVOUSNESS [None]
  - PARKINSON'S DISEASE [None]
  - WEIGHT DECREASED [None]
